FAERS Safety Report 10050718 (Version 1)
Quarter: 2014Q2

REPORT INFORMATION
  Report Type: Spontaneous
  Country: US (occurrence: US)
  Receive Date: 20140401
  Receipt Date: 20140401
  Transmission Date: 20141212
  Serious: No
  Sender: FDA-Public Use
  Company Number: US-ASTRAZENECA-2013SE69447

PATIENT
  Age: 57 Year
  Sex: Female
  Weight: 56.7 kg

DRUGS (2)
  1. NEXIUM [Suspect]
     Indication: BARRETT^S OESOPHAGUS
     Route: 048
     Dates: start: 2012, end: 20130906
  2. OMEPRAZOLE OTC [Suspect]
     Route: 048
     Dates: start: 2002, end: 2012

REACTIONS (4)
  - Rheumatoid arthritis [Not Recovered/Not Resolved]
  - Arteriosclerosis [Not Recovered/Not Resolved]
  - Off label use [Not Recovered/Not Resolved]
  - Drug dose omission [Not Recovered/Not Resolved]
